FAERS Safety Report 7483681-8 (Version None)
Quarter: 2011Q2

REPORT INFORMATION
  Report Type: 
  Country: None (occurrence: None)
  Receive Date: 20110517
  Receipt Date: 20110513
  Transmission Date: 20111010
  Serious: Yes (Death)
  Sender: FDA-Public Use
  Company Number: AU-ASTRAZENECA-2011SE28167

PATIENT
  Age: 82 Year
  Sex: Female

DRUGS (4)
  1. SEROQUEL XR [Suspect]
     Route: 048
     Dates: start: 20110201
  2. OTHERS [Concomitant]
  3. CYMBALTA [Concomitant]
  4. MIRTAZAPINE [Concomitant]

REACTIONS (2)
  - CHEST PAIN [None]
  - DEATH [None]
